FAERS Safety Report 24189995 (Version 1)
Quarter: 2024Q3

REPORT INFORMATION
  Report Type: Spontaneous
  Country: US (occurrence: None)
  Receive Date: 20240807
  Receipt Date: 20240807
  Transmission Date: 20241016
  Serious: Yes (Hospitalization, Disabling)
  Sender: Public
  Company Number: None

PATIENT
  Age: 75 Year
  Sex: Female
  Weight: 80.2 kg

DRUGS (1)
  1. APIXABAN [Suspect]
     Active Substance: APIXABAN
     Indication: Atrial fibrillation
     Route: 048

REACTIONS (6)
  - Paraesthesia [None]
  - Muscular weakness [None]
  - Subdural haematoma [None]
  - Spinal compression fracture [None]
  - Spinal compression fracture [None]
  - Spinal compression fracture [None]

NARRATIVE: CASE EVENT DATE: 20240615
